FAERS Safety Report 23340707 (Version 4)
Quarter: 2024Q2

REPORT INFORMATION
  Report Type: Report from Study
  Country: CA (occurrence: CA)
  Receive Date: 20231227
  Receipt Date: 20240419
  Transmission Date: 20240716
  Serious: Yes (Other)
  Sender: FDA-Public Use
  Company Number: CA-TAKEDA-2023TUS121909

PATIENT
  Age: 71 Year
  Sex: Male

DRUGS (2)
  1. IXAZOMIB [Suspect]
     Active Substance: IXAZOMIB
     Indication: Plasma cell myeloma
     Dosage: 4 MILLIGRAM, Q2WEEKS
     Route: 048
     Dates: start: 20231204
  2. IXAZOMIB [Suspect]
     Active Substance: IXAZOMIB
     Dosage: 2.3 MILLIGRAM, Q2WEEKS
     Route: 048

REACTIONS (5)
  - Haematemesis [Recovered/Resolved]
  - Vomiting [Recovered/Resolved]
  - Nausea [Unknown]
  - Rash [Unknown]
  - Off label use [Unknown]

NARRATIVE: CASE EVENT DATE: 20231204
